FAERS Safety Report 23180466 (Version 7)
Quarter: 2024Q2

REPORT INFORMATION
  Report Type: Report from Study
  Country: US (occurrence: US)
  Receive Date: 20231114
  Receipt Date: 20240418
  Transmission Date: 20240715
  Serious: No
  Sender: FDA-Public Use
  Company Number: US-AstraZeneca-CH-00505750A

PATIENT
  Sex: Female
  Weight: 48.073 kg

DRUGS (2)
  1. STRENSIQ [Suspect]
     Active Substance: ASFOTASE ALFA
     Indication: Hypophosphatasia
     Dosage: 48 MILLIGRAM, SIX TIMES/WEEK
     Route: 058
     Dates: start: 20231106
  2. STRENSIQ [Suspect]
     Active Substance: ASFOTASE ALFA
     Dosage: UNK
     Route: 058

REACTIONS (14)
  - Pain [Recovering/Resolving]
  - Condition aggravated [Recovering/Resolving]
  - Nausea [Unknown]
  - Abdominal discomfort [Unknown]
  - Arthralgia [Recovering/Resolving]
  - Fatigue [Recovering/Resolving]
  - Bone pain [Not Recovered/Not Resolved]
  - Somnolence [Not Recovered/Not Resolved]
  - Myalgia [Unknown]
  - Tremor [Unknown]
  - Muscle spasms [Recovering/Resolving]
  - Muscle twitching [Recovered/Resolved]
  - Injection site pain [Not Recovered/Not Resolved]
  - Injection site bruising [Recovered/Resolved]
